FAERS Safety Report 15993654 (Version 9)
Quarter: 2021Q2

REPORT INFORMATION
  Report Type: Report from Study
  Country: US (occurrence: US)
  Receive Date: 20190222
  Receipt Date: 20210510
  Transmission Date: 20210716
  Serious: Yes (Hospitalization)
  Sender: FDA-Public Use
  Company Number: PHEH2019US007404

PATIENT
  Age: 34 Year
  Sex: Male

DRUGS (1)
  1. AFINITOR [Suspect]
     Active Substance: EVEROLIMUS
     Indication: ANGIOMYOLIPOMA
     Dosage: 12.5 MG, QD
     Route: 048
     Dates: start: 20121129

REACTIONS (15)
  - Malaise [Unknown]
  - Irritability [Unknown]
  - Cough [Unknown]
  - Bronchitis [Unknown]
  - Dizziness [Unknown]
  - Product dose omission issue [Unknown]
  - Haemorrhoids [Unknown]
  - Pyrexia [Unknown]
  - Somnolence [Unknown]
  - Sinusitis [Unknown]
  - Bronchitis [Recovered/Resolved]
  - Vomiting [Unknown]
  - Headache [Unknown]
  - Hyperhidrosis [Unknown]
  - Ear infection [Unknown]

NARRATIVE: CASE EVENT DATE: 20190212
